FAERS Safety Report 7206391-0 (Version None)
Quarter: 2011Q1

REPORT INFORMATION
  Report Type: 
  Country: None (occurrence: None)
  Receive Date: 20110103
  Receipt Date: 20110103
  Transmission Date: 20110831
  Serious: Yes (Hospitalization)
  Sender: FDA-Public Use
  Company Number: PHHO2007AT15726

PATIENT
  Sex: Female
  Weight: 56 kg

DRUGS (8)
  1. ACEMIN [Concomitant]
     Dates: end: 20040603
  2. AUGMENTIN '125' [Suspect]
     Dosage: 1 G, BID
     Route: 048
     Dates: start: 20070914, end: 20070922
  3. ACECOMB [Concomitant]
     Indication: HYPERTENSION
  4. DILATREND [Concomitant]
     Indication: HYPERTENSION
     Dosage: UNK, UNK
  5. AUGMENTIN '125' [Suspect]
     Dosage: 650 MG, BID
     Route: 048
     Dates: start: 20070901, end: 20070907
  6. NORMOXIN [Concomitant]
     Dates: end: 20050818
  7. CERTICAN [Suspect]
     Indication: CONGENITAL CYSTIC KIDNEY DISEASE
     Dosage: UNK
     Route: 048
     Dates: start: 20070705, end: 20070922
  8. ISRADIPINE [Concomitant]
     Dates: end: 20060825

REACTIONS (5)
  - ENTERITIS INFECTIOUS [None]
  - TONSILLECTOMY [None]
  - DIARRHOEA [None]
  - VOMITING [None]
  - TONSILLITIS [None]
